FAERS Safety Report 8273974-9 (Version None)
Quarter: 2012Q2

REPORT INFORMATION
  Report Type: 
  Country: None (occurrence: None)
  Receive Date: 20120411
  Receipt Date: 20120409
  Transmission Date: 20120825
  Serious: Yes (Hospitalization)
  Sender: FDA-Public Use
  Company Number: US-BAYER-2012-023721

PATIENT
  Age: 67 Year
  Sex: Female
  Weight: 100 kg

DRUGS (3)
  1. METOPROLOL TARTRATE [Concomitant]
  2. ALEVE (CAPLET) [Suspect]
     Indication: BACK PAIN
     Dosage: 1 DF, BID
     Route: 048
     Dates: start: 20111201, end: 20120301
  3. ALEVE (CAPLET) [Suspect]
     Dosage: BOTTLE COUNT 50, 1 DF EVERY 12 HOURS
     Route: 048
     Dates: start: 20111201, end: 20120301

REACTIONS (2)
  - GASTRIC ULCER [None]
  - ABDOMINAL PAIN UPPER [None]
